FAERS Safety Report 8880919 (Version 2)
Quarter: 2012Q4

REPORT INFORMATION
  Report Type: 
  Country: US (occurrence: US)
  Receive Date: 20121101
  Receipt Date: 20121207
  Transmission Date: 20130627
  Serious: Yes (Death, Hospitalization)
  Sender: FDA-Public Use
  Company Number: US-B.I. PHARMACEUTICALS,INC./RIDGEFIELD-2012-BP-26951BP

PATIENT
  Age: 68 Year
  Sex: Female
  Weight: 57.61 kg

DRUGS (6)
  1. PRADAXA [Suspect]
     Indication: ATRIAL FIBRILLATION
     Dosage: 150 mg
     Route: 048
     Dates: start: 20110817, end: 201207
  2. METOPROLOL [Concomitant]
  3. BETA BLOCKERS [Concomitant]
  4. DILANTIN [Concomitant]
  5. SYMBICORT [Concomitant]
  6. XANAX [Concomitant]

REACTIONS (3)
  - Cerebral artery embolism [Fatal]
  - Peripheral embolism [Fatal]
  - Peripheral embolism [Fatal]
